FAERS Safety Report 25482897 (Version 1)
Quarter: 2025Q2

REPORT INFORMATION
  Report Type: Spontaneous
  Country: PT (occurrence: PT)
  Receive Date: 20250626
  Receipt Date: 20250626
  Transmission Date: 20250717
  Serious: Yes (Other)
  Sender: AMERICAN REGENT
  Company Number: PT-AMERICAN REGENT INC-2025002421

PATIENT
  Age: 45 Year
  Sex: Female

DRUGS (2)
  1. FERINJECT [Suspect]
     Active Substance: FERRIC CARBOXYMALTOSE
     Indication: Iron deficiency
     Route: 042
     Dates: start: 20250522
  2. FERINJECT [Suspect]
     Active Substance: FERRIC CARBOXYMALTOSE
     Route: 042
     Dates: start: 2025

REACTIONS (5)
  - Oxygen saturation decreased [Recovering/Resolving]
  - Nausea [Recovered/Resolved]
  - Hypotension [Recovered/Resolved]
  - Abdominal pain [Recovered/Resolved]
  - Pallor [Recovering/Resolving]

NARRATIVE: CASE EVENT DATE: 20250522
